FAERS Safety Report 11273451 (Version 1)
Quarter: 2015Q3

REPORT INFORMATION
  Report Type: Report from Study
  Country: US (occurrence: US)
  Receive Date: 20150715
  Receipt Date: 20150715
  Transmission Date: 20151125
  Serious: Yes (Hospitalization, Other)
  Sender: FDA-Public Use
  Company Number: US-JNJFOC-20150705152

PATIENT
  Age: 65 Year
  Sex: Female
  Weight: 94.35 kg

DRUGS (1)
  1. REMICADE [Suspect]
     Active Substance: INFLIXIMAB
     Indication: RHEUMATOID ARTHRITIS
     Route: 042
     Dates: start: 2014

REACTIONS (3)
  - Postoperative wound infection [Unknown]
  - Respiratory tract infection [Recovered/Resolved]
  - Vascular operation [Unknown]

NARRATIVE: CASE EVENT DATE: 201411
